FAERS Safety Report 12326491 (Version 1)
Quarter: 2016Q2

REPORT INFORMATION
  Report Type: Spontaneous
  Country: US (occurrence: US)
  Receive Date: 20160503
  Receipt Date: 20160503
  Transmission Date: 20160815
  Serious: No
  Sender: FDA-Public Use
  Company Number: US-TEVA-656516ACC

PATIENT
  Age: 40 Year
  Sex: Female

DRUGS (1)
  1. PLAN B ONE-STEP [Suspect]
     Active Substance: LEVONORGESTREL
     Indication: POST COITAL CONTRACEPTION
     Dates: start: 20160424, end: 20160424

REACTIONS (3)
  - Dizziness [Unknown]
  - Dysmenorrhoea [Unknown]
  - Sleep disorder [Unknown]
